FAERS Safety Report 8451637-4 (Version None)
Quarter: 2012Q2

REPORT INFORMATION
  Report Type: 
  Country: None (occurrence: None)
  Receive Date: 20120323
  Receipt Date: 20111213
  Transmission Date: 20120825
  Serious: Yes (Other)
  Sender: FDA-Public Use
  Company Number: 163-21880-11102105

PATIENT
  Age: 78 Year
  Sex: Male

DRUGS (5)
  1. REVLIMID [Suspect]
     Indication: MYELOFIBROSIS
     Dosage: 25 MG, 1 IN 1 D, PO 15 MG, 1 IN 1 D, PO 5 MG, DAILY X 21 DAYS, PO 2.5 MG , 1 IN 2 D, PO
     Route: 048
     Dates: start: 20110801, end: 20110829
  2. REVLIMID [Suspect]
     Indication: MYELOFIBROSIS
     Dosage: 25 MG, 1 IN 1 D, PO 15 MG, 1 IN 1 D, PO 5 MG, DAILY X 21 DAYS, PO 2.5 MG , 1 IN 2 D, PO
     Route: 048
     Dates: start: 20111013
  3. REVLIMID [Suspect]
     Indication: MYELOFIBROSIS
     Dosage: 25 MG, 1 IN 1 D, PO 15 MG, 1 IN 1 D, PO 5 MG, DAILY X 21 DAYS, PO 2.5 MG , 1 IN 2 D, PO
     Route: 048
     Dates: start: 20111101
  4. REVLIMID [Suspect]
     Indication: MYELOFIBROSIS
     Dosage: 25 MG, 1 IN 1 D, PO 15 MG, 1 IN 1 D, PO 5 MG, DAILY X 21 DAYS, PO 2.5 MG , 1 IN 2 D, PO
     Route: 048
     Dates: start: 20110415
  5. ASPIRIN [Concomitant]

REACTIONS (1)
  - PLATELET COUNT DECREASED [None]
